FAERS Safety Report 6134141-8 (Version None)
Quarter: 2009Q1

REPORT INFORMATION
  Report Type: 
  Country: None (occurrence: None)
  Receive Date: 20090326
  Receipt Date: 20090318
  Transmission Date: 20090719
  Serious: Yes (Hospitalization)
  Sender: FDA-Public Use
  Company Number: ES-SANOFI-SYNTHELABO-F01200900026

PATIENT
  Sex: Male
  Weight: 42 kg

DRUGS (9)
  1. DOCETAXEL [Suspect]
     Route: 042
     Dates: start: 20090102, end: 20090102
  2. OXALIPLATIN [Suspect]
     Indication: GASTRIC CANCER
     Route: 042
     Dates: start: 20090102, end: 20090102
  3. DEXAMETHASONE [Concomitant]
     Indication: PAIN
     Route: 048
     Dates: start: 20080910
  4. IRON SUPPLEMENT [Concomitant]
     Indication: PROPHYLAXIS
     Route: 048
     Dates: start: 20080101
  5. OMEPRAZOLE [Concomitant]
     Indication: PROPHYLAXIS
     Route: 048
     Dates: start: 20080901
  6. METOCLOPRAMIDE [Concomitant]
     Indication: PROPHYLAXIS
     Route: 048
     Dates: start: 20080901
  7. FENTANILO [Concomitant]
     Indication: PAIN
     Dates: start: 20080901
  8. PARACETAMOL [Concomitant]
     Indication: PAIN
     Route: 048
     Dates: start: 20080901
  9. CAPECITABINE [Suspect]
     Route: 048
     Dates: start: 20080904, end: 20090107

REACTIONS (1)
  - EASTERN COOPERATIVE ONCOLOGY GROUP PERFORMANCE STATUS WORSENED [None]
